FAERS Safety Report 7933642-7 (Version None)
Quarter: 2011Q4

REPORT INFORMATION
  Report Type: 
  Country: None (occurrence: None)
  Receive Date: 20111118
  Receipt Date: 20111116
  Transmission Date: 20120403
  Serious: Yes (Death)
  Sender: FDA-Public Use
  Company Number: 2011SP033924

PATIENT
  Age: 53 Year
  Sex: Male
  Weight: 54 kg

DRUGS (3)
  1. PEG-INTRON [Suspect]
     Indication: HEPATITIS C
     Dosage: 80 MCG; QW; SC, 40 MCG; QW; SC
     Route: 058
     Dates: start: 20090226, end: 20090312
  2. PEG-INTRON [Suspect]
     Indication: HEPATITIS C
     Dosage: 80 MCG; QW; SC, 40 MCG; QW; SC
     Route: 058
     Dates: start: 20090319, end: 20090625
  3. REBETOL [Suspect]
     Indication: HEPATITIS C
     Dosage: 500 MG; QD; PO
     Route: 048
     Dates: start: 20090226, end: 20090625

REACTIONS (4)
  - STILL'S DISEASE ADULT ONSET [None]
  - INTERSTITIAL LUNG DISEASE [None]
  - MALAISE [None]
  - PLEURISY [None]
